FAERS Safety Report 5001220-8 (Version None)
Quarter: 2006Q1

REPORT INFORMATION
  Report Type: 
  Country: None (occurrence: None)
  Receive Date: 20060315
  Receipt Date: 20060111
  Transmission Date: 20060701
  Serious: Yes (Other)
  Sender: FDA-Public Use
  Company Number: 431956

PATIENT
  Sex: Female

DRUGS (4)
  1. BONIVA [Suspect]
     Indication: OSTEOPOROSIS
     Dosage: 150 MG 1 PER MONTH ORAL
     Route: 048
  2. FOSAMAX [Concomitant]
  3. CALCIUM (CALCIUM) [Concomitant]
  4. COUMADIN [Concomitant]

REACTIONS (1)
  - HYPERTENSION [None]
